FAERS Safety Report 4374353-7 (Version None)
Quarter: 2004Q2

REPORT INFORMATION
  Report Type: 
  Country: None (occurrence: None)
  Receive Date: 20040609
  Receipt Date: 20040331
  Transmission Date: 20050107
  Serious: Yes (Hospitalization, Other)
  Sender: FDA-Public Use
  Company Number: PHFR2004GB01677

PATIENT
  Age: 55 Year
  Sex: Female

DRUGS (1)
  1. CLOZARIL [Suspect]
     Indication: SCHIZOPHRENIA
     Route: 048
     Dates: start: 20040308

REACTIONS (4)
  - ANAEMIA [None]
  - FAECAL OCCULT BLOOD POSITIVE [None]
  - HAEMOGLOBIN DECREASED [None]
  - HUMERUS FRACTURE [None]
